FAERS Safety Report 7174901-8 (Version None)
Quarter: 2010Q4

REPORT INFORMATION
  Report Type: 
  Country: None (occurrence: None)
  Receive Date: 20101219
  Receipt Date: 20101206
  Transmission Date: 20110411
  Serious: Yes (Hospitalization)
  Sender: FDA-Public Use
  Company Number: DE-MYLANLABS-2009S1005487

PATIENT
  Age: 78 Year
  Sex: Female
  Weight: 65 kg

DRUGS (10)
  1. DICLOFENAC [Suspect]
     Indication: OSTEOARTHRITIS
     Route: 048
     Dates: start: 20050101
  2. FALITHROM [Interacting]
     Indication: ATRIAL FLUTTER
     Route: 048
     Dates: start: 20020101
  3. ARELIX [Concomitant]
     Indication: PULMONARY ARTERIAL HYPERTENSION
     Route: 048
  4. RAMIPRIL [Concomitant]
     Indication: PULMONARY ARTERIAL HYPERTENSION
     Route: 048
  5. ATACAND [Concomitant]
     Indication: PULMONARY ARTERIAL HYPERTENSION
     Route: 048
  6. EFEROX [Concomitant]
     Indication: HYPOTHYROIDISM
  7. AMIODARONE [Concomitant]
     Indication: ATRIAL FLUTTER
     Route: 048
     Dates: start: 20020101
  8. VERAPAMIL [Concomitant]
     Indication: TACHYCARDIA
     Route: 048
     Dates: start: 20020101
  9. OMEPRAZOLE [Concomitant]
     Indication: PROPHYLAXIS AGAINST GASTROINTESTINAL ULCER
     Route: 048
     Dates: start: 20050101
  10. DIGITOXIN [Concomitant]
     Indication: TACHYCARDIA
     Route: 048
     Dates: start: 20020101

REACTIONS (2)
  - DRUG INTERACTION [None]
  - GASTROINTESTINAL HAEMORRHAGE [None]
